FAERS Safety Report 24436175 (Version 2)
Quarter: 2024Q4

REPORT INFORMATION
  Report Type: Spontaneous
  Country: US (occurrence: US)
  Receive Date: 20241015
  Receipt Date: 20241108
  Transmission Date: 20250115
  Serious: Yes (Hospitalization)
  Sender: TOLMAR
  Company Number: US-TOLMAR, INC.-24US053036

PATIENT
  Age: 78 Year
  Sex: Male
  Weight: 77.098 kg

DRUGS (5)
  1. ELIGARD [Suspect]
     Active Substance: LEUPROLIDE ACETATE
     Indication: Prostate cancer
     Dosage: 22.5 MILLIGRAM, Q 3 MONTH
     Route: 058
     Dates: start: 20240923
  2. ELIGARD [Suspect]
     Active Substance: LEUPROLIDE ACETATE
     Indication: Prostate cancer
     Dosage: UNK
  3. DARZALEX [Suspect]
     Active Substance: DARATUMUMAB
     Indication: Product used for unknown indication
     Dosage: UNK
     Dates: start: 20240923
  4. PREDNISONE [Suspect]
     Active Substance: PREDNISONE
     Indication: Product used for unknown indication
     Dosage: UNK
     Route: 048
  5. UNSPECIFIED INGREDIENT [Suspect]
     Active Substance: UNSPECIFIED INGREDIENT
     Indication: Blood pressure abnormal
     Dosage: UNK (LAST 20 YEARS)
     Dates: end: 202410

REACTIONS (12)
  - Atrial fibrillation [Not Recovered/Not Resolved]
  - Skin discolouration [Recovering/Resolving]
  - Hypoaesthesia oral [Recovering/Resolving]
  - Pain in jaw [Recovering/Resolving]
  - Gait inability [Recovering/Resolving]
  - Balance disorder [Not Recovered/Not Resolved]
  - Weight decreased [Unknown]
  - Swelling of eyelid [Recovered/Resolved]
  - Dyspnoea [Unknown]
  - Asthenia [Recovering/Resolving]
  - Injection site pain [Recovered/Resolved]
  - Dizziness [Recovered/Resolved]

NARRATIVE: CASE EVENT DATE: 20240901
